FAERS Safety Report 24761648 (Version 1)
Quarter: 2024Q4

REPORT INFORMATION
  Report Type: Spontaneous
  Country: JP (occurrence: JP)
  Receive Date: 20241220
  Receipt Date: 20241220
  Transmission Date: 20250115
  Serious: Yes (Death, Life-Threatening, Hospitalization)
  Sender: GENUS LIFESCIENCES
  Company Number: JP-Genus_Lifesciences-USA-ALL0580202400148

PATIENT
  Age: 87 Year
  Sex: Female
  Weight: 40.8 kg

DRUGS (6)
  1. YOSPRALA [Suspect]
     Active Substance: ASPIRIN\OMEPRAZOLE
     Indication: Cerebral infarction
     Route: 065
     Dates: end: 2024
  2. APIXABAN [Suspect]
     Active Substance: APIXABAN
     Indication: Pulmonary embolism
     Route: 065
     Dates: end: 2024
  3. FUROSEMIDE [Concomitant]
     Active Substance: FUROSEMIDE
     Indication: Pulmonary embolism
     Route: 065
     Dates: end: 2024
  4. PRAVASTATIN [Concomitant]
     Active Substance: PRAVASTATIN
     Indication: Pulmonary embolism
     Route: 065
     Dates: end: 2024
  5. ESOMEPRAZOLE [Concomitant]
     Active Substance: ESOMEPRAZOLE
     Indication: Pulmonary embolism
     Route: 065
     Dates: end: 2024
  6. BETAHISTINE [Concomitant]
     Active Substance: BETAHISTINE
     Indication: Pulmonary embolism
     Route: 065
     Dates: end: 2024

REACTIONS (10)
  - Brain herniation [Fatal]
  - Cerebral haemorrhage [Not Recovered/Not Resolved]
  - Cerebral haematoma [Not Recovered/Not Resolved]
  - Cerebral ventricular rupture [Not Recovered/Not Resolved]
  - Brain oedema [Not Recovered/Not Resolved]
  - Aphasia [Not Recovered/Not Resolved]
  - Hemiplegia [Not Recovered/Not Resolved]
  - Hypoaesthesia [Not Recovered/Not Resolved]
  - Carotid artery occlusion [Not Recovered/Not Resolved]
  - Cerebral infarction [Not Recovered/Not Resolved]

NARRATIVE: CASE EVENT DATE: 20240101
